FAERS Safety Report 6698594-9 (Version None)
Quarter: 2010Q2

REPORT INFORMATION
  Report Type: 
  Country: None (occurrence: None)
  Receive Date: 20100427
  Receipt Date: 20100416
  Transmission Date: 20101027
  Serious: Yes (Hospitalization)
  Sender: FDA-Public Use
  Company Number: US-PFIZER INC-2005077908

PATIENT
  Sex: Male
  Weight: 68.04 kg

DRUGS (21)
  1. BLINDED *NO SUBJECT DRUG [Suspect]
     Indication: PNEUMONIA
     Dosage: UNK
     Route: 042
     Dates: start: 20050330, end: 20050407
  2. BLINDED *VANCOMYCIN [Suspect]
     Indication: PNEUMONIA
     Dosage: UNK
     Route: 042
     Dates: start: 20050330, end: 20050407
  3. BLINDED LINEZOLID [Suspect]
     Indication: PNEUMONIA
     Dosage: UNK
     Route: 042
     Dates: start: 20050330, end: 20050407
  4. PANTOPRAZOLE [Concomitant]
     Route: 048
     Dates: start: 20050324, end: 20050407
  5. LORAZEPAM [Concomitant]
     Route: 048
     Dates: start: 20050324, end: 20050407
  6. MORPHINE SULFATE [Concomitant]
     Route: 042
     Dates: start: 20050324
  7. ALBUTEROL SULFATE AUTOHALER [Concomitant]
     Route: 055
     Dates: start: 20050324
  8. IPRATROPIUM [Concomitant]
     Route: 045
     Dates: start: 20050325
  9. DOCUSATE [Concomitant]
     Route: 048
     Dates: start: 20050325, end: 20050414
  10. LORTAB [Concomitant]
     Route: 048
     Dates: start: 20050325, end: 20050404
  11. FERROUS SULFATE TAB [Concomitant]
     Route: 048
     Dates: start: 20050325, end: 20050414
  12. ACETAMINOPHEN [Concomitant]
     Route: 048
     Dates: start: 20050326
  13. HEPARIN [Concomitant]
     Route: 042
     Dates: start: 20050325, end: 20050404
  14. NEURONTIN [Concomitant]
     Route: 042
     Dates: start: 20050328, end: 20050407
  15. METHADONE HCL [Concomitant]
     Route: 042
     Dates: start: 20050328, end: 20050407
  16. DIPHENHYDRAMINE [Concomitant]
     Route: 048
     Dates: start: 20050403
  17. DIAZEPAM [Concomitant]
     Route: 048
     Dates: start: 20050414
  18. TEMAZEPAM [Concomitant]
     Route: 048
     Dates: start: 20050414
  19. DECADRON [Concomitant]
     Route: 048
     Dates: start: 20050414
  20. CEFEPIME [Concomitant]
     Route: 042
     Dates: start: 20050419
  21. AMIKACIN [Concomitant]
     Route: 042
     Dates: start: 20050419

REACTIONS (1)
  - PNEUMONIA [None]
